FAERS Safety Report 20201096 (Version 1)
Quarter: 2021Q4

REPORT INFORMATION
  Report Type: Spontaneous
  Country: US (occurrence: US)
  Receive Date: 20211217
  Receipt Date: 20211217
  Transmission Date: 20220303
  Serious: No
  Sender: FDA-Public Use
  Company Number: US-PAIPHARMA-2021-US-022898

PATIENT
  Age: 73 Year
  Sex: Female
  Weight: 90.72 kg

DRUGS (2)
  1. CHLORHEXIDINE GLUCONATE [Suspect]
     Active Substance: CHLORHEXIDINE GLUCONATE
     Indication: Product used for unknown indication
     Dosage: RINSED 2X PER DAY
     Route: 048
     Dates: start: 20210902, end: 20210904
  2. VITAMINS [Concomitant]
     Active Substance: VITAMINS

REACTIONS (6)
  - Mouth swelling [Recovered/Resolved]
  - Oral pain [Recovered/Resolved]
  - Blister [Recovered/Resolved]
  - Lip erythema [Recovered/Resolved]
  - Swollen tongue [Recovered/Resolved]
  - Swelling face [Recovered/Resolved]

NARRATIVE: CASE EVENT DATE: 20210904
